FAERS Safety Report 8152390-4 (Version None)
Quarter: 2012Q1

REPORT INFORMATION
  Report Type: 
  Country: None (occurrence: None)
  Receive Date: 20120221
  Receipt Date: 20120215
  Transmission Date: 20120608
  Serious: Yes (Other)
  Sender: FDA-Public Use
  Company Number: JP-BAYER-2012-015313

PATIENT
  Age: 23 Year
  Sex: Female

DRUGS (2)
  1. YAZ [Suspect]
     Indication: DYSMENORRHOEA
     Route: 048
  2. YAZ [Suspect]
     Indication: ENDOMETRIOSIS

REACTIONS (1)
  - PELVIC INFLAMMATORY DISEASE [None]
